FAERS Safety Report 5009841-3 (Version None)
Quarter: 2006Q2

REPORT INFORMATION
  Report Type: 
  Country: None (occurrence: None)
  Receive Date: 20060523
  Receipt Date: 20060523
  Transmission Date: 20061013
  Serious: No
  Sender: FDA-Public Use
  Company Number: None

PATIENT
  Age: 58 Year
  Sex: Male
  Weight: 83 kg

DRUGS (2)
  1. HEPARIN [Suspect]
     Indication: VENTRICULAR ASSIST DEVICE INSERTION
     Dosage: IVD
     Route: 041
     Dates: start: 20051001, end: 20051016
  2. HEPARIN [Suspect]
     Indication: VENTRICULAR TACHYCARDIA
     Dosage: IVD
     Route: 041
     Dates: start: 20051001, end: 20051016

REACTIONS (2)
  - HYPOTENSION [None]
  - INCISION SITE HAEMATOMA [None]
